FAERS Safety Report 15138718 (Version 2)
Quarter: 2020Q4

REPORT INFORMATION
  Report Type: Other
  Country: JP (occurrence: JP)
  Receive Date: 20180713
  Receipt Date: 20201020
  Transmission Date: 20210113
  Serious: Yes (Other)
  Sender: FDA-Public Use
  Company Number: JP-ROCHE-2153337

PATIENT
  Age: 74 Year
  Sex: Female

DRUGS (6)
  1. XELODA [Suspect]
     Active Substance: CAPECITABINE
     Indication: HER2 POSITIVE GASTRIC CANCER
     Dosage: DAY1-14
     Route: 048
  2. XELODA [Suspect]
     Active Substance: CAPECITABINE
     Dosage: DAY1-14
     Route: 048
  3. CISPLATIN. [Concomitant]
     Active Substance: CISPLATIN
     Route: 041
  4. CISPLATIN. [Concomitant]
     Active Substance: CISPLATIN
     Indication: HER2 POSITIVE GASTRIC CANCER
     Dosage: DAY 1
     Route: 041
  5. HERCEPTIN [Suspect]
     Active Substance: TRASTUZUMAB
     Indication: HER2 POSITIVE GASTRIC CANCER
     Dosage: LOADING DOSE?DAY 1
     Route: 041
  6. HERCEPTIN [Suspect]
     Active Substance: TRASTUZUMAB
     Dosage: MAINTENANCE DOSE
     Route: 041

REACTIONS (3)
  - Decreased appetite [Unknown]
  - Nausea [Unknown]
  - Renal impairment [Unknown]
